FAERS Safety Report 13076925 (Version 1)
Quarter: 2016Q4

REPORT INFORMATION
  Report Type: Spontaneous
  Country: GB (occurrence: GB)
  Receive Date: 20161230
  Receipt Date: 20161230
  Transmission Date: 20170207
  Serious: Yes (Other)
  Sender: FDA-Public Use
  Company Number: GB-PFIZER INC-2016601917

PATIENT
  Age: 76 Year
  Sex: Male
  Weight: 89 kg

DRUGS (22)
  1. ZAPAIN [Concomitant]
     Active Substance: ACETAMINOPHEN\CODEINE PHOSPHATE
     Dosage: TAKE 1 OR 2 UP TO 4 TIMES/DAY
     Dates: start: 20161129
  2. NOVOMIX [Concomitant]
     Active Substance: INSULIN ASPART
     Dosage: USE AS DIRECTED
     Dates: start: 20160808
  3. TRIMETHOPRIM. [Concomitant]
     Active Substance: TRIMETHOPRIM
     Dosage: 1 DF, 1X/DAY (AT NIGHT)
     Dates: start: 20160808
  4. AMITRIPTYLINE HYDROCHLORIDE. [Concomitant]
     Active Substance: AMITRIPTYLINE HYDROCHLORIDE
     Dosage: 1 DF, 1X/DAY (AT NIGHT)
     Dates: start: 20160808
  5. LAXIDO [Concomitant]
     Active Substance: POLYETHYLENE GLYCOL 3350\POTASSIUM CHLORIDE\SODIUM BICARBONATE\SODIUM CHLORIDE
     Dosage: 1 DF, 2X/DAY
     Dates: start: 20160223
  6. RAMIPRIL. [Concomitant]
     Active Substance: RAMIPRIL
     Dosage: 1 DF, 1X/DAY
     Dates: start: 20160628
  7. SIMVASTATIN. [Concomitant]
     Active Substance: SIMVASTATIN
     Dosage: 1 DF, 1X/DAY (AT NIGHT)
     Dates: start: 20160808
  8. SIRDUPLA [Concomitant]
     Dosage: 2 DF, 2X/DAY
     Route: 055
     Dates: start: 20160808
  9. THIAMINE. [Concomitant]
     Active Substance: THIAMINE
     Dosage: 1 DF, 4X/DAY
     Dates: start: 20160808
  10. LEVOFLOXACIN. [Suspect]
     Active Substance: LEVOFLOXACIN
     Dosage: UNK
     Dates: start: 20161215
  11. BUSCOPAN [Concomitant]
     Active Substance: BUTYLSCOPOLAMINE BROMIDE
     Dosage: 2 DF, 4X/DAY
     Dates: start: 20160902
  12. CEFALEXIN [Concomitant]
     Active Substance: CEPHALEXIN
     Dosage: 1 DF, 3X/DAY
     Dates: start: 20161125, end: 20161202
  13. GLUCOPHAGE [Concomitant]
     Active Substance: METFORMIN HYDROCHLORIDE
     Dosage: 2 DF, 1X/DAY (WITH FOOD)
     Dates: start: 20160808
  14. MOMETASONE [Concomitant]
     Active Substance: MOMETASONE
     Dosage: 2 DF, 1X/DAY
     Dates: start: 20161024, end: 20161121
  15. PARACETAMOL [Concomitant]
     Active Substance: ACETAMINOPHEN
     Dosage: TAKE 1 OR 2 4 TIMES/DAY
     Dates: start: 20160808
  16. TEMAZEPAM. [Concomitant]
     Active Substance: TEMAZEPAM
     Dosage: 1 DF, 1X/DAY (AT NIGHT)
     Dates: start: 20151202
  17. LANSOPRAZOLE. [Concomitant]
     Active Substance: LANSOPRAZOLE
     Dosage: 1 DF, 1X/DAY
     Dates: start: 20161121
  18. VENTOLIN [Concomitant]
     Active Substance: ALBUTEROL SULFATE
     Dosage: ONE OR TWO PUFFS
     Route: 055
     Dates: start: 20160808
  19. AMLODIPINE [Concomitant]
     Active Substance: AMLODIPINE BESYLATE
     Dosage: 1 DF, 1X/DAY
     Dates: start: 20160808
  20. CIMETIDINE [Concomitant]
     Active Substance: CIMETIDINE
     Dosage: 1 DF, 1X/DAY (AT NIGHT)
     Dates: start: 20160808
  21. PREDNISOLONE. [Concomitant]
     Active Substance: PREDNISOLONE
     Dosage: 8 DF, 1X/DAY (FOR 5 DAYS)
     Dates: start: 20161121, end: 20161126
  22. SERTRALINE [Concomitant]
     Active Substance: SERTRALINE HYDROCHLORIDE
     Dosage: 1 DF, 1X/DAY
     Dates: start: 20160808

REACTIONS (2)
  - Malaise [Recovered/Resolved]
  - Decreased appetite [Unknown]

NARRATIVE: CASE EVENT DATE: 20161215
